FAERS Safety Report 10040545 (Version 1)
Quarter: 2014Q1

REPORT INFORMATION
  Report Type: Spontaneous
  Country: US (occurrence: US)
  Receive Date: 20140327
  Receipt Date: 20140327
  Transmission Date: 20141002
  Serious: Yes (Other)
  Sender: FDA-Public Use
  Company Number: US-AMGEN-USASP2014021027

PATIENT
  Age: 66 Year
  Sex: Male

DRUGS (3)
  1. ENBREL [Suspect]
     Indication: PSORIATIC ARTHROPATHY
     Dosage: 50 MG, QWK
     Route: 065
     Dates: start: 20011001
  2. METHOTREXATE [Concomitant]
     Dosage: 15 MG, QWK (6 OF 2.5MG ONCE WEEKLY)
  3. PREDNISONE [Concomitant]
     Dosage: UNK

REACTIONS (6)
  - Pain [Recovered/Resolved]
  - Activities of daily living impaired [Recovered/Resolved]
  - Psoriatic arthropathy [Not Recovered/Not Resolved]
  - Gastrointestinal disorder [Unknown]
  - Red blood cell sedimentation rate increased [Unknown]
  - Laboratory test abnormal [Unknown]
